FAERS Safety Report 7717197-8 (Version None)
Quarter: 2011Q3

REPORT INFORMATION
  Report Type: 
  Country: None (occurrence: None)
  Receive Date: 20110826
  Receipt Date: 20110826
  Transmission Date: 20111222
  Serious: Yes (Hospitalization)
  Sender: FDA-Public Use
  Company Number: None

PATIENT
  Sex: Female
  Weight: 94 kg

DRUGS (2)
  1. CARBOPLATIN [Suspect]
     Dosage: 667 MG
     Dates: end: 20110816
  2. TAXOL [Suspect]
     Dosage: 144 MG
     Dates: end: 20110816

REACTIONS (2)
  - STAPHYLOCOCCUS TEST POSITIVE [None]
  - WOUND SECRETION [None]
